FAERS Safety Report 25745891 (Version 1)
Quarter: 2025Q3

REPORT INFORMATION
  Report Type: Spontaneous
  Country: IN (occurrence: IN)
  Receive Date: 20250901
  Receipt Date: 20250901
  Transmission Date: 20251020
  Serious: Yes (Disabling)
  Sender: MACLEODS
  Company Number: IN-MLMSERVICE-20250813-PI613718-00178-1

PATIENT

DRUGS (1)
  1. IBANDRONATE SODIUM [Suspect]
     Active Substance: IBANDRONATE SODIUM
     Indication: Osteoporosis
     Route: 048

REACTIONS (2)
  - Bone marrow oedema [Recovered/Resolved]
  - Atypical femur fracture [Recovered/Resolved]
